FAERS Safety Report 18739755 (Version 1)
Quarter: 2021Q1

REPORT INFORMATION
  Report Type: Spontaneous
  Country: US (occurrence: US)
  Receive Date: 20210113
  Receipt Date: 20210113
  Transmission Date: 20210419
  Serious: No
  Sender: FDA-Public Use
  Company Number: None

PATIENT
  Sex: Female

DRUGS (5)
  1. MIRTEX?? [Concomitant]
  2. COSENTYX [Suspect]
     Active Substance: SECUKINUMAB
     Indication: PSORIATIC ARTHROPATHY
     Route: 058
     Dates: start: 20201108
  3. LEFLUCOMIDE?? [Concomitant]
  4. ALBUTEROL. [Suspect]
     Active Substance: ALBUTEROL
  5. LEVOCETRIZI?? [Concomitant]

REACTIONS (1)
  - Surgery [None]
